FAERS Safety Report 4760414-7 (Version None)
Quarter: 2005Q3

REPORT INFORMATION
  Report Type: 
  Country: None (occurrence: None)
  Receive Date: 20050902
  Receipt Date: 20050826
  Transmission Date: 20060218
  Serious: Yes (Hospitalization)
  Sender: FDA-Public Use
  Company Number: CA-BRISTOL-MYERS SQUIBB COMPANY-13092671

PATIENT
  Age: 56 Year
  Sex: Female
  Weight: 74 kg

DRUGS (9)
  1. BEST SUPPORTIVE CARE [Suspect]
     Indication: COLORECTAL CANCER METASTATIC
     Dates: start: 20050124
  2. CETUXIMAB [Suspect]
     Route: 042
     Dates: start: 20050526
  3. BEVACIZUMAB [Suspect]
     Route: 042
     Dates: start: 20050526
  4. IRINOTECAN [Suspect]
     Route: 042
     Dates: start: 20050526
  5. OXALIPLATIN [Suspect]
     Route: 042
     Dates: start: 20050526
  6. HYDROCODONE [Concomitant]
     Indication: ABDOMINAL PAIN UPPER
  7. LEVAQUIN [Concomitant]
     Indication: PYREXIA
  8. NEUPOGEN [Concomitant]
     Indication: WHITE BLOOD CELL COUNT DECREASED
  9. POTASSIUM [Concomitant]
     Indication: HYPOKALAEMIA

REACTIONS (4)
  - FEBRILE NEUTROPENIA [None]
  - LEUKOPENIA [None]
  - NEUTROPENIA [None]
  - THROMBOCYTOPENIA [None]
